FAERS Safety Report 7572928-5 (Version None)
Quarter: 2011Q2

REPORT INFORMATION
  Report Type: 
  Country: None (occurrence: None)
  Receive Date: 20110627
  Receipt Date: 20110613
  Transmission Date: 20111010
  Serious: Yes (Disabling, Other)
  Sender: FDA-Public Use
  Company Number: ES-JNJFOC-20110601217

PATIENT
  Sex: Male
  Weight: 95 kg

DRUGS (3)
  1. ABIRATERONE ACETATE [Suspect]
     Route: 048
  2. ABIRATERONE ACETATE [Suspect]
     Indication: PROSTATE CANCER METASTATIC
     Route: 048
     Dates: start: 20110415, end: 20110524
  3. FENTANYL [Concomitant]
     Indication: PAIN
     Route: 065
     Dates: start: 20110504

REACTIONS (4)
  - DISEASE PROGRESSION [None]
  - ASTHENIA [None]
  - BONE PAIN [None]
  - ANAEMIA [None]
